FAERS Safety Report 21733106 (Version 3)
Quarter: 2023Q1

REPORT INFORMATION
  Report Type: Spontaneous
  Country: JP (occurrence: JP)
  Receive Date: 20221215
  Receipt Date: 20230125
  Transmission Date: 20230417
  Serious: Yes (Hospitalization, Other)
  Sender: FDA-Public Use
  Company Number: JP-GSKNCCC-Case-01589014_AE-63161

PATIENT

DRUGS (10)
  1. LAMICTAL [Suspect]
     Active Substance: LAMOTRIGINE
     Indication: Bipolar disorder
     Dosage: 12.5 MG, QD
     Route: 048
     Dates: start: 20131026
  2. LAMICTAL [Suspect]
     Active Substance: LAMOTRIGINE
     Dosage: 25 MG, QD
     Route: 048
  3. LAMICTAL [Suspect]
     Active Substance: LAMOTRIGINE
     Dosage: 75 MG, BID
     Route: 048
     Dates: end: 20220721
  4. LAMICTAL [Suspect]
     Active Substance: LAMOTRIGINE
     Dosage: 2100 MG
     Route: 048
     Dates: start: 202208, end: 202208
  5. QUETIAPINE FUMARATE [Concomitant]
     Active Substance: QUETIAPINE FUMARATE
     Indication: Bipolar disorder
     Dosage: 150 MG, QD
     Route: 048
     Dates: start: 20180127, end: 20220721
  6. NITRAZEPAM [Concomitant]
     Active Substance: NITRAZEPAM
     Indication: Bipolar disorder
     Dosage: 10 MG, QD, SINCE BEFORE 2007
     Route: 048
     Dates: end: 20220721
  7. NITRAZEPAM [Concomitant]
     Active Substance: NITRAZEPAM
     Indication: Insomnia
  8. DAYVIGO [Concomitant]
     Active Substance: LEMBOREXANT
     Indication: Bipolar disorder
     Dosage: 2.5 MG, QD
     Route: 048
     Dates: start: 20220514, end: 20220721
  9. DAYVIGO [Concomitant]
     Active Substance: LEMBOREXANT
     Indication: Insomnia
  10. ROSUVASTATIN CALCIUM [Concomitant]
     Active Substance: ROSUVASTATIN CALCIUM
     Indication: Dyslipidaemia
     Dosage: 2.5 MG/DAY
     Route: 048
     Dates: start: 20140426, end: 20220721

REACTIONS (10)
  - Muscular weakness [Recovering/Resolving]
  - Monoplegia [Recovering/Resolving]
  - Mobility decreased [Recovered/Resolved]
  - Dyskinesia [Recovered/Resolved]
  - Grip strength decreased [Recovering/Resolving]
  - Overdose [Unknown]
  - Prescribed underdose [Unknown]
  - Inappropriate schedule of product administration [Unknown]
  - Product use issue [Unknown]
  - Off label use [Unknown]
